FAERS Safety Report 5801238-9 (Version None)
Quarter: 2008Q3

REPORT INFORMATION
  Report Type: 
  Country: None (occurrence: None)
  Receive Date: 20080703
  Receipt Date: 20080703
  Transmission Date: 20090109
  Serious: No
  Sender: FDA-Public Use
  Company Number: None

PATIENT
  Sex: Male
  Weight: 82.5547 kg

DRUGS (1)
  1. DIGOXIN [Suspect]
     Indication: ATRIAL FIBRILLATION
     Dosage: .25 MG ONCE DAILY
     Dates: start: 19700101, end: 20080501

REACTIONS (2)
  - DIZZINESS [None]
  - HEART RATE DECREASED [None]
